FAERS Safety Report 10101607 (Version 2)
Quarter: 2014Q2

REPORT INFORMATION
  Report Type: Spontaneous
  Country: US (occurrence: US)
  Receive Date: 20140424
  Receipt Date: 20140531
  Transmission Date: 20141212
  Serious: Yes (Hospitalization, Other)
  Sender: FDA-Public Use
  Company Number: 2014SP002108

PATIENT
  Age: 48 Year
  Sex: Female
  Weight: 52.16 kg

DRUGS (24)
  1. VANCOMYCIN [Suspect]
     Indication: PRODUCT USED FOR UNKNOWN INDICATION
     Route: 042
     Dates: start: 201402
  2. VANCOMYCIN [Suspect]
     Indication: PRODUCT USED FOR UNKNOWN INDICATION
     Route: 042
  3. PIP/TAZO [Suspect]
     Indication: PRODUCT USED FOR UNKNOWN INDICATION
     Route: 042
     Dates: start: 201402
  4. INTERFERON GAMMA-1B [Suspect]
     Indication: GRANULOMA
     Dates: start: 2014
  5. INTERFERON GAMMA-1B [Suspect]
     Indication: GRANULOMA
     Route: 058
     Dates: start: 1988, end: 201401
  6. INTERFERON GAMMA-1B [Suspect]
     Indication: GRANULOMA
     Dates: start: 1992
  7. BACTRIM [Suspect]
     Indication: PRODUCT USED FOR UNKNOWN INDICATION
  8. DIPHENHYDRAMINE HYDROCHLORIDE [Suspect]
     Route: 042
  9. ITRACONAZOLE [Concomitant]
     Indication: PRURITUS
  10. PERAMPANEL [Concomitant]
     Indication: PRURITUS
  11. CLOBAZAM [Concomitant]
     Indication: PRURITUS
  12. LORAZEPAM [Concomitant]
     Indication: CONVULSION
  13. LEVETIRACETAM [Concomitant]
     Indication: EPILEPSY
  14. LAMOTRIGINE [Concomitant]
     Indication: EPILEPSY
  15. DESVENLAFAXINE SUCCINATE [Concomitant]
  16. RANITIDINE HYDROCHLORIDE [Concomitant]
  17. ZOLPIDEM TARTRATE [Concomitant]
  18. LISINOPRIL [Concomitant]
     Indication: HYPERTENSION
  19. DICLOFENAC SODIUM [Concomitant]
     Route: 061
  20. DOCUSATE SODIUM [Concomitant]
  21. MORPHINE SULFATE [Concomitant]
     Indication: PAIN
  22. SENNA /00571901/ [Concomitant]
  23. EPINEPHRINE [Concomitant]
     Indication: ANAPHYLACTIC REACTION
  24. OMEPRAZOLE [Concomitant]

REACTIONS (30)
  - Red man syndrome [Recovered/Resolved]
  - Fall [Unknown]
  - Joint injury [Unknown]
  - Fungal oesophagitis [Unknown]
  - Iron deficiency anaemia [Not Recovered/Not Resolved]
  - Neutrophil count decreased [Unknown]
  - Pruritus [Unknown]
  - Weight decreased [Unknown]
  - Convulsion [Unknown]
  - Pyrexia [Unknown]
  - Cellulitis [Recovered/Resolved]
  - Bursitis [Unknown]
  - Arthralgia [Unknown]
  - Lung consolidation [Unknown]
  - Pleural effusion [Unknown]
  - Diarrhoea [Unknown]
  - Productive cough [Unknown]
  - Erythema [Unknown]
  - Chest pain [Unknown]
  - Dysphagia [Unknown]
  - Lymphadenopathy [Unknown]
  - Lymph node pain [Unknown]
  - Decreased appetite [Unknown]
  - Disorientation [Unknown]
  - Neck pain [Unknown]
  - Anaesthetic complication [Unknown]
  - Hypotension [Unknown]
  - Fatigue [Unknown]
  - Dizziness [Unknown]
  - Dyspnoea [Unknown]
